FAERS Safety Report 24017632 (Version 1)
Quarter: 2024Q2

REPORT INFORMATION
  Report Type: Report from Study
  Country: US (occurrence: US)
  Receive Date: 20240627
  Receipt Date: 20240627
  Transmission Date: 20240715
  Serious: Yes (Hospitalization)
  Sender: FDA-Public Use
  Company Number: US-JAZZ-2014-US-004600

PATIENT
  Age: 34 Year
  Sex: Female

DRUGS (6)
  1. XYREM [Suspect]
     Active Substance: SODIUM OXYBATE
     Indication: Narcolepsy
     Dosage: 2.25 GRAM, BID
     Route: 048
     Dates: start: 201104, end: 2011
  2. XYREM [Suspect]
     Active Substance: SODIUM OXYBATE
     Indication: Cataplexy
     Dosage: 3 GRAM, BID
     Route: 048
     Dates: start: 201209, end: 201303
  3. XYREM [Suspect]
     Active Substance: SODIUM OXYBATE
     Indication: Somnolence
     Dosage: 3.75G TWICE NIGHTLY
  4. NUVIGIL [Concomitant]
     Active Substance: ARMODAFINIL
     Indication: Somnolence
     Dosage: 200 MG, QD
  5. DEXEDRINE [Concomitant]
     Active Substance: DEXTROAMPHETAMINE SULFATE
     Indication: Somnolence
     Dosage: 10 MG, QD
  6. MULTIVITAMIN IRON [Concomitant]
     Dosage: UNK
     Dates: start: 20150326

REACTIONS (5)
  - Abdominal pain [Unknown]
  - Cataplexy [Not Recovered/Not Resolved]
  - Illness [Unknown]
  - Incorrect product dosage form administered [Unknown]
  - Product administration interrupted [Unknown]

NARRATIVE: CASE EVENT DATE: 20140701
